FAERS Safety Report 9552714 (Version 1)
Quarter: 2013Q3

REPORT INFORMATION
  Report Type: Spontaneous
  Country: US (occurrence: US)
  Receive Date: 20130925
  Receipt Date: 20130925
  Transmission Date: 20140515
  Serious: No
  Sender: FDA-Public Use
  Company Number: US-PURDUE-USA-2012-0096510

PATIENT
  Sex: Female

DRUGS (2)
  1. MORPHINE SULFATE (SIMILAR TO NDA 19-516) [Suspect]
     Indication: ARTHRALGIA
     Route: 048
  2. REMICADE [Concomitant]
     Indication: ARTHRITIS
     Dosage: UNK
     Route: 042
     Dates: start: 2001

REACTIONS (1)
  - Nausea [Unknown]
